FAERS Safety Report 9150164 (Version 2)
Quarter: 2013Q1

REPORT INFORMATION
  Report Type: Report from Study
  Country: US (occurrence: US)
  Receive Date: 20130308
  Receipt Date: 20130321
  Transmission Date: 20140127
  Serious: Yes (Hospitalization)
  Sender: FDA-Public Use
  Company Number: US-ABBOTT-13P-163-1056041-00

PATIENT
  Age: 52 Year
  Sex: Male
  Weight: 83.99 kg

DRUGS (9)
  1. HUMIRA [Suspect]
     Indication: CROHN^S DISEASE
     Route: 058
     Dates: start: 20080425, end: 20080425
  2. HUMIRA [Suspect]
     Dosage: WEEK 2
     Route: 058
  3. HUMIRA [Suspect]
     Route: 058
  4. ZANAFLEX [Concomitant]
     Indication: MYALGIA
     Dates: start: 200802
  5. MULTIVITAMINS [Concomitant]
     Indication: MEDICAL DIET
     Route: 048
     Dates: start: 2005
  6. OSTEO BI-FLEX [Concomitant]
     Indication: ARTHRITIS
     Route: 048
     Dates: start: 2006
  7. ULTRAM [Concomitant]
     Indication: PAIN
     Dates: start: 200809
  8. DURAGESIC [Concomitant]
     Dates: start: 200809
  9. PREDNISONE [Concomitant]
     Indication: CROHN^S DISEASE
     Dates: start: 20080425

REACTIONS (1)
  - Ileectomy [Recovered/Resolved]
